FAERS Safety Report 4465364-1 (Version None)
Quarter: 2004Q4

REPORT INFORMATION
  Report Type: 
  Country: None (occurrence: None)
  Receive Date: 20041004
  Receipt Date: 20020924
  Transmission Date: 20050328
  Serious: Yes (Hospitalization)
  Sender: FDA-Public Use
  Company Number: 200218784GDDC

PATIENT
  Sex: Female
  Weight: 62.59 kg

DRUGS (6)
  1. CAMPTOSAR [Suspect]
     Indication: NON-SMALL CELL LUNG CANCER
     Route: 042
     Dates: start: 20020905, end: 20020912
  2. DOCETAXEL [Suspect]
     Indication: NON-SMALL CELL LUNG CANCER
     Route: 042
     Dates: start: 20020905, end: 20020912
  3. LOPERAMIDE HCL [Concomitant]
     Dates: end: 20020917
  4. ATENOLOL [Concomitant]
     Dates: end: 20020917
  5. ZOLOFT [Concomitant]
     Dates: end: 20020917
  6. SYNTHROID [Concomitant]
     Dates: end: 20020917

REACTIONS (15)
  - ASTHENIA [None]
  - BLOOD ELECTROLYTES DECREASED [None]
  - BLOOD SODIUM DECREASED [None]
  - DEHYDRATION [None]
  - DIARRHOEA [None]
  - DIZZINESS [None]
  - HAEMATOCRIT DECREASED [None]
  - HAEMOGLOBIN DECREASED [None]
  - HYPOCALCAEMIA [None]
  - HYPOKALAEMIA [None]
  - MARKEDLY REDUCED DIETARY INTAKE [None]
  - MOUTH ULCERATION [None]
  - RED BLOOD CELL COUNT DECREASED [None]
  - VOMITING [None]
  - WHITE BLOOD CELL COUNT DECREASED [None]
